FAERS Safety Report 8495623 (Version 3)
Quarter: 2012Q4

REPORT INFORMATION
  Report Type: 
  Country: US (occurrence: US)
  Receive Date: 20120405
  Receipt Date: 20121024
  Transmission Date: 20130627
  Serious: Yes (Hospitalization)
  Sender: FDA-Public Use
  Company Number: US-BAYER-2012-032743

PATIENT
  Age: 60 Year
  Sex: Male
  Weight: 78 kg

DRUGS (22)
  1. NEXAVAR [Suspect]
     Indication: LIVER, CANCER OF
     Dosage: 200 mg, BID
     Dates: start: 20100804
  2. LACTULOSE [Concomitant]
     Dosage: UNK UNK, QD
  3. PROPRANOLOL [Concomitant]
  4. LIDODERM [Concomitant]
  5. LORAZEPAM [Concomitant]
  6. CENTRUM [Concomitant]
     Dosage: UNK, QD
  7. HYDROCODONE W/APAP [Concomitant]
     Dosage: UNK, HS
  8. FUROSEMIDE [Concomitant]
  9. GABAPENTIN [Concomitant]
  10. HYDROMORPHONE HCL [Concomitant]
  11. DIAZEPAM [Concomitant]
  12. PANTOPRAZOLE [Concomitant]
  13. OXYCODONE [Concomitant]
  14. METHYLPHENIDATE [Concomitant]
  15. MAGNESIUM [Concomitant]
  16. RITALIN [Concomitant]
  17. OXYCONTIN [Concomitant]
  18. SPIRONOLACTONE [Concomitant]
  19. HYDROMORPHONE [Concomitant]
     Dosage: 0.5 DF, Q1HR
  20. ALPRAZOLAM [Concomitant]
     Dosage: UNK UNK, QD
  21. METOCLOPRAM [Concomitant]
     Dosage: 4 DF, QD
     Route: 048
  22. MIRTAZAPINE [Concomitant]

REACTIONS (3)
  - Ammonia increased [Recovering/Resolving]
  - Fatigue [Recovering/Resolving]
  - Confusional state [Recovering/Resolving]
